FAERS Safety Report 23460092 (Version 4)
Quarter: 2025Q4

REPORT INFORMATION
  Report Type: Spontaneous
  Country: EU (occurrence: EU)
  Receive Date: 20240131
  Receipt Date: 20251127
  Transmission Date: 20260117
  Serious: Yes (Hospitalization, Other)
  Sender: MACLEODS
  Company Number: None

PATIENT

DRUGS (5)
  1. PANTOPRAZOLE SODIUM [Suspect]
     Active Substance: PANTOPRAZOLE SODIUM
     Indication: Product used for unknown indication
     Dosage: 40 MILLIGRAM, QD (DURING 6 YEARS)
     Route: 048
     Dates: start: 20160422, end: 20220315
  2. LACOSAMIDE [Suspect]
     Active Substance: LACOSAMIDE
     Indication: Epilepsy
     Dosage: 600 MILLIGRAM, QD (DURING 4 YEARS)
     Route: 048
     Dates: start: 20180705, end: 20230309
  3. VALPROATE SODIUM [Suspect]
     Active Substance: VALPROATE SODIUM
     Indication: Epilepsy
     Dosage: 2400 MILLIGRAM, QD (DURING 6 YEARS)
     Route: 048
     Dates: start: 20160504
  4. CLOBAZAM [Concomitant]
     Active Substance: CLOBAZAM
     Indication: Product used for unknown indication
     Dosage: 30 MILLIGRAM, QD (DURING 2 YEARS)
     Route: 065
  5. FOLIC ACID [Concomitant]
     Active Substance: FOLIC ACID
     Indication: Product used for unknown indication
     Dosage: 5 MILLIGRAM, QD (DURING 6 YEARS)
     Route: 065

REACTIONS (2)
  - Pancreatitis acute [Recovering/Resolving]
  - Type IV hypersensitivity reaction [Recovering/Resolving]

NARRATIVE: CASE EVENT DATE: 20220414
